FAERS Safety Report 12481615 (Version 2)
Quarter: 2016Q3

REPORT INFORMATION
  Report Type: Spontaneous
  Country: BR (occurrence: BR)
  Receive Date: 20160620
  Receipt Date: 20160727
  Transmission Date: 20161109
  Serious: Yes (Other)
  Sender: FDA-Public Use
  Company Number: BR-PFIZER INC-2016291225

PATIENT
  Age: 73 Year
  Sex: Female

DRUGS (1)
  1. EFFEXOR XR [Suspect]
     Active Substance: VENLAFAXINE HYDROCHLORIDE
     Dosage: STRENGTH 150 MG

REACTIONS (4)
  - Product physical issue [Unknown]
  - Laceration [Unknown]
  - Product use issue [Unknown]
  - Confusional state [Unknown]
